FAERS Safety Report 13421475 (Version 4)
Quarter: 2017Q2

REPORT INFORMATION
  Report Type: Report from Study
  Country: US (occurrence: US)
  Receive Date: 20170410
  Receipt Date: 20170614
  Transmission Date: 20170830
  Serious: Yes (Other)
  Sender: FDA-Public Use
  Company Number: US-AMGEN-USASL2017051487

PATIENT
  Age: 64 Year
  Sex: Male

DRUGS (1)
  1. ENBREL [Suspect]
     Active Substance: ETANERCEPT
     Indication: PSORIASIS
     Dosage: 50 MG, QWK
     Route: 065
     Dates: start: 20150902, end: 201608

REACTIONS (7)
  - Mobility decreased [Unknown]
  - Dysstasia [Unknown]
  - Pruritus [Unknown]
  - Skin swelling [Unknown]
  - Psoriasis [Not Recovered/Not Resolved]
  - Disability [Not Recovered/Not Resolved]
  - Drug dose omission [Unknown]

NARRATIVE: CASE EVENT DATE: 201609
